FAERS Safety Report 24358655 (Version 1)
Quarter: 2024Q3

REPORT INFORMATION
  Report Type: Report from Study
  Country: US (occurrence: US)
  Receive Date: 20240924
  Receipt Date: 20240924
  Transmission Date: 20241016
  Serious: Yes (Other)
  Sender: ABBVIE
  Company Number: US-ABBVIE-5531318

PATIENT
  Age: 62 Year
  Sex: Male

DRUGS (3)
  1. HUMIRA [Suspect]
     Active Substance: ADALIMUMAB
     Indication: Colitis ulcerative
     Dosage: FORM STRENGTH: 40 MILLIGRAM, CITRATE FREE
     Route: 058
     Dates: start: 20210420
  2. HUMIRA [Suspect]
     Active Substance: ADALIMUMAB
     Dosage: FORM STRENGTH: 40 MG, CITRATE FREE
     Route: 058
  3. HUMIRA [Suspect]
     Active Substance: ADALIMUMAB
     Dosage: FORM STRENGTH: 40 MG, CITRATE FREE
     Route: 058

REACTIONS (20)
  - Deafness unilateral [Unknown]
  - Weight increased [Recovering/Resolving]
  - Arthritis [Unknown]
  - Dizziness postural [Unknown]
  - Myalgia [Unknown]
  - Pain in extremity [Unknown]
  - Back pain [Unknown]
  - Hypertension [Unknown]
  - Pain in extremity [Recovered/Resolved]
  - Constipation [Unknown]
  - Rash papular [Unknown]
  - Tremor [Unknown]
  - Seasonal allergy [Unknown]
  - Increased tendency to bruise [Unknown]
  - Halo vision [Unknown]
  - Vision blurred [Unknown]
  - Lacrimation increased [Unknown]
  - Sneezing [Unknown]
  - Tympanic membrane perforation [Unknown]
  - Eustachian tube obstruction [Unknown]

NARRATIVE: CASE EVENT DATE: 20210401
